FAERS Safety Report 23265699 (Version 1)
Quarter: 2023Q4

REPORT INFORMATION
  Report Type: Spontaneous
  Country: US (occurrence: US)
  Receive Date: 20231206
  Receipt Date: 20231206
  Transmission Date: 20240110
  Serious: No
  Sender: FDA-Public Use
  Company Number: US-drreddys-SPO/USA/23/0187115

PATIENT
  Sex: Female

DRUGS (1)
  1. IBANDRONATE SODIUM [Suspect]
     Active Substance: IBANDRONATE SODIUM
     Indication: Osteoporosis
     Dosage: MONTH LONG DOSE
     Dates: start: 2023, end: 2023

REACTIONS (1)
  - Lymphadenopathy [Unknown]

NARRATIVE: CASE EVENT DATE: 20231101
